FAERS Safety Report 7815712-7 (Version None)
Quarter: 2011Q4

REPORT INFORMATION
  Report Type: 
  Country: None (occurrence: None)
  Receive Date: 20111014
  Receipt Date: 20111010
  Transmission Date: 20120403
  Serious: Yes (Death, Other)
  Sender: FDA-Public Use
  Company Number: NO-BRISTOL-MYERS SQUIBB COMPANY-16146177

PATIENT
  Age: 49 Year
  Sex: Male

DRUGS (7)
  1. DOXORUBICIN HCL [Suspect]
     Indication: HODGKIN'S DISEASE
     Dosage: 35MG/SQ.MT
     Route: 042
  2. BLEOMYCIN SULFATE [Suspect]
     Indication: HODGKIN'S DISEASE
     Route: 042
  3. PREDNISOLONE [Suspect]
     Indication: HODGKIN'S DISEASE
     Dosage: ON DAYS 1 TO 14 IN EVERY 21 DAY CYCLE TREATMENT FOR 6 CYCLES
     Route: 048
  4. CYCLOPHOSPHAMIDE [Suspect]
     Indication: HODGKIN'S DISEASE
     Dosage: 650MG/SQM
     Route: 042
  5. ETOPOSIDE [Suspect]
     Indication: HODGKIN'S DISEASE
     Dosage: 100MG/SQ.MT
     Route: 042
  6. VINCRISTINE [Suspect]
     Indication: HODGKIN'S DISEASE
     Route: 042
  7. PROCARBAZINE HYDROCHLORIDE [Suspect]
     Indication: HODGKIN'S DISEASE
     Route: 048

REACTIONS (5)
  - BONE MARROW FAILURE [None]
  - LUNG INFILTRATION [None]
  - PNEUMOCYSTIS JIROVECI PNEUMONIA [None]
  - PYREXIA [None]
  - SEPTIC SHOCK [None]
